FAERS Safety Report 9846095 (Version 2)
Quarter: 2014Q1

REPORT INFORMATION
  Report Type: Spontaneous
  Country: FR (occurrence: FR)
  Receive Date: 20140127
  Receipt Date: 20140210
  Transmission Date: 20141002
  Serious: Yes (Other)
  Sender: FDA-Public Use
  Company Number: PHHY2014FR008254

PATIENT
  Age: 78 Year
  Sex: Female

DRUGS (2)
  1. FEMARA [Suspect]
     Indication: BREAST CANCER
     Dosage: UNK UKN, QD
     Route: 048
     Dates: start: 201312
  2. LETROZOLE [Suspect]
     Indication: BREAST CANCER
     Dosage: UNK UKN, QD
     Route: 048
     Dates: start: 201307, end: 201307

REACTIONS (3)
  - Visual field defect [Not Recovered/Not Resolved]
  - Cataract [Recovered/Resolved]
  - Vision blurred [Unknown]
